FAERS Safety Report 22337170 (Version 1)
Quarter: 2023Q2

REPORT INFORMATION
  Report Type: Spontaneous
  Country: US (occurrence: US)
  Receive Date: 20230518
  Receipt Date: 20230518
  Transmission Date: 20230721
  Serious: No
  Sender: FDA-Public Use
  Company Number: US-STERISCIENCE B.V.-2023-ST-000605

PATIENT
  Age: 40 Year
  Sex: Female

DRUGS (54)
  1. ONDANSETRON [Suspect]
     Active Substance: ONDANSETRON
     Indication: Vomiting
     Dosage: 4 MILLIGRAM, TID
     Route: 042
  2. ONDANSETRON [Suspect]
     Active Substance: ONDANSETRON
     Dosage: 4 MILLIGRAM, 0.25 D, RECEIVED ON HOSPITALISATION DAY 1
     Route: 042
  3. ONDANSETRON [Suspect]
     Active Substance: ONDANSETRON
     Dosage: 4 MILLIGRAM, 0.25 D, RECEIVED ON HOSPITALISATION DAY 2
     Route: 042
  4. ONDANSETRON [Suspect]
     Active Substance: ONDANSETRON
     Dosage: 8 MILLIGRAM, 0.5 D, RECEIVED ON HOSPITALISATION DAY 3
     Route: 042
  5. ONDANSETRON [Suspect]
     Active Substance: ONDANSETRON
     Dosage: 8 MILLIGRAM, 0.5 D, RECEIVED ON HOSPITALISATION DAY 4
     Route: 042
  6. ONDANSETRON [Suspect]
     Active Substance: ONDANSETRON
     Dosage: 8 MILLIGRAM, 0.5 D, RECEIVED ON HOSPITALISATION DAY 6
     Route: 042
  7. FAMOTIDINE [Suspect]
     Active Substance: FAMOTIDINE
     Indication: Nausea
     Dosage: 20 MILLIGRAM, QD
     Route: 042
  8. FAMOTIDINE [Suspect]
     Active Substance: FAMOTIDINE
     Dosage: 20 MILLIGRAM, 0.5 D, RECEIVED ON HOSPITALISATION DAY 1
     Route: 042
  9. FAMOTIDINE [Suspect]
     Active Substance: FAMOTIDINE
     Dosage: 20 MILLIGRAM, 0.5 D, RECEIVED ON HOSPITALISATION DAY 2
     Route: 042
  10. FAMOTIDINE [Suspect]
     Active Substance: FAMOTIDINE
     Dosage: 20 MILLIGRAM, QD, RECEIVED ON HOSPITALISATION DAY 3
     Route: 042
  11. FAMOTIDINE [Suspect]
     Active Substance: FAMOTIDINE
     Dosage: 20 MILLIGRAM, 0.5 D, RECEIVED ON HOSPITALISATION DAY 4
     Route: 042
  12. FAMOTIDINE [Suspect]
     Active Substance: FAMOTIDINE
     Dosage: 20 MILLIGRAM, 0.5 D, RECEIVED ON HOSPITALISATION DAY 5
     Route: 042
  13. FAMOTIDINE [Suspect]
     Active Substance: FAMOTIDINE
     Dosage: 20 MILLIGRAM, 0.5 D, RECEIVED ON HOSPITALISATION DAY 6
     Route: 042
  14. LIDOCAINE [Suspect]
     Active Substance: LIDOCAINE
     Indication: Abdominal pain
     Dosage: 15 MILLILITER, QD
     Route: 048
  15. LORAZEPAM [Suspect]
     Active Substance: LORAZEPAM
     Indication: Anxiety
     Dosage: 0.5 MILLIGRAM, 0.5 D
     Route: 042
  16. LORAZEPAM [Suspect]
     Active Substance: LORAZEPAM
     Dosage: 0.5 MILLIGRAM, QD, RECEIVED ON HOSPITALISATION DAY 1
     Route: 042
  17. LORAZEPAM [Suspect]
     Active Substance: LORAZEPAM
     Dosage: 0.5 MILLIGRAM, QD, RECEIVED ON HOSPITALISATION DAY 2
     Route: 042
  18. LORAZEPAM [Suspect]
     Active Substance: LORAZEPAM
     Dosage: 1 MILLIGRAM, QD, RECEIVED ON HOSPITALISATION DAY 3
     Route: 042
  19. METOCLOPRAMIDE [Suspect]
     Active Substance: METOCLOPRAMIDE
     Indication: Vomiting
     Dosage: 10 MILLIGRAM, QD
     Route: 042
  20. METOCLOPRAMIDE [Suspect]
     Active Substance: METOCLOPRAMIDE
     Dosage: 10 MILLIGRAM, QD, RECEIVED ON HOSPITALISATION DAY 3
     Route: 042
  21. METOCLOPRAMIDE [Suspect]
     Active Substance: METOCLOPRAMIDE
     Dosage: 10 MILLIGRAM, 0.25 D, RECEIVED ON HOSPITALISATION DAY 4
     Route: 042
  22. METOCLOPRAMIDE [Suspect]
     Active Substance: METOCLOPRAMIDE
     Dosage: 10 MILLIGRAM, 0.25 D, RECEIVED ON HOSPITALISATION DAY 5
     Route: 042
  23. METOCLOPRAMIDE [Suspect]
     Active Substance: METOCLOPRAMIDE
     Dosage: 10 MILLIGRAM, 0.5 D, RECEIVED ON HOSPITALISATION DAY 6
     Route: 042
  24. SUCRALFATE [Suspect]
     Active Substance: SUCRALFATE
     Indication: Nausea
     Dosage: 1 GRAM, QD
     Route: 048
  25. SUCRALFATE [Suspect]
     Active Substance: SUCRALFATE
     Dosage: 1 GRAM, RECEIVED ON HOSPITALISATION DAY 1
     Route: 048
  26. SUCRALFATE [Suspect]
     Active Substance: SUCRALFATE
     Dosage: 1 GRAM, TID, RECEIVED THREE TIMES DAILY ON HOSPITALISATION DAY 2
     Route: 048
  27. SUCRALFATE [Suspect]
     Active Substance: SUCRALFATE
     Dosage: 1 GRAM, 0.25D, RECEIVED ON HOSPITALISATION DAY 3
     Route: 048
  28. SUCRALFATE [Suspect]
     Active Substance: SUCRALFATE
     Dosage: 1 GRAM, 0.5 D, RECEIVED ON HOSPITALISATION DAY 4
     Route: 048
  29. DIPHENHYDRAMINE [Suspect]
     Active Substance: DIPHENHYDRAMINE
     Indication: Formication
     Dosage: 50 MILLIGRAM, QD
     Route: 048
  30. DIPHENHYDRAMINE [Suspect]
     Active Substance: DIPHENHYDRAMINE
     Dosage: 50 MILLIGRAM, QD, ON HOSPITALISATION DAY 1
     Route: 048
  31. PROCHLORPERAZINE [Suspect]
     Active Substance: PROCHLORPERAZINE
     Indication: Vomiting
     Dosage: 25 MILLIGRAM, 0.5D, RECEIVED ON HOSPITALISATION DAY 1
  32. PROCHLORPERAZINE [Suspect]
     Active Substance: PROCHLORPERAZINE
     Dosage: 25 MILLIGRAM,0.25D, RECEIVED ON HOSPITALISATION DAY 2
  33. PROCHLORPERAZINE [Suspect]
     Active Substance: PROCHLORPERAZINE
     Dosage: 25 MILLIGRAM, 0.5 D, RECEIVED ON HOSPITALISATION DAY 3
  34. PROMETHAZINE [Suspect]
     Active Substance: PROMETHAZINE HYDROCHLORIDE
     Indication: Vomiting
     Dosage: 25 MILLIGRAM, 0.5 D, RECEIVED ON HOSPITALISATION DAY 1
     Route: 048
  35. PROMETHAZINE [Suspect]
     Active Substance: PROMETHAZINE HYDROCHLORIDE
     Dosage: 25 MILLIGRAM,  0.25 D, RECEIVED ON HOSPITALISATION DAY 2
     Route: 048
  36. PROMETHAZINE [Suspect]
     Active Substance: PROMETHAZINE HYDROCHLORIDE
     Dosage: 25 MILLIGRAM, TID, RECEIVED THREE TIMES ON HOSPITALISATION DAY 5
     Route: 048
  37. PROMETHAZINE [Suspect]
     Active Substance: PROMETHAZINE HYDROCHLORIDE
     Dosage: 25 MILLIGRAM, TID, RECEIVED THREE TIMES ON HOSPITALISATION DAY 6
     Route: 048
  38. PROMETHAZINE [Suspect]
     Active Substance: PROMETHAZINE HYDROCHLORIDE
     Dosage: 25 MILLIGRAM, QD, RECEIVED ON HOSPITALISATION DAY 3
     Route: 042
  39. PROMETHAZINE [Suspect]
     Active Substance: PROMETHAZINE HYDROCHLORIDE
     Dosage: 25 MILLIGRAM, 0.25 D, RECEIVED ON HOSPITALISATION DAY 4
     Route: 042
  40. PROMETHAZINE [Suspect]
     Active Substance: PROMETHAZINE HYDROCHLORIDE
     Dosage: 25 MILLIGRAM, 0.5 D, RECEIVED ON HOSPITALISATION DAY 5
     Route: 042
  41. LACTATED RINGERS SOLUTION [Suspect]
     Active Substance: CALCIUM CHLORIDE\POTASSIUM CHLORIDE\SODIUM CHLORIDE\SODIUM LACTATE
     Indication: Electrolyte substitution therapy
     Dosage: RECEIVING CONTINUED ON HOSPITALISATION DAY 1, 2 AND 3
     Route: 042
  42. HALOPERIDOL [Suspect]
     Active Substance: HALOPERIDOL
     Indication: Cannabinoid hyperemesis syndrome
     Dosage: 1 MILLIGRAM, RECEIVED THREE TIMES DAILY ON HOSPITALISATION DAY 3
     Route: 042
  43. HALOPERIDOL [Suspect]
     Active Substance: HALOPERIDOL
     Dosage: 1 MILLIGRAM, RECEIVED SIX TIMES DAILY ON HOSPITALISATION DAY 4
     Route: 042
  44. HALOPERIDOL [Suspect]
     Active Substance: HALOPERIDOL
     Dosage: 1 MILLIGRAM, RECEIVED FIVE TIMES DAILY ON HOSPITALISATION DAY 5
     Route: 042
  45. HALOPERIDOL [Suspect]
     Active Substance: HALOPERIDOL
     Dosage: 1 MILLIGRAM, RECEIVED FIVE TIMES DAILY ON HOSPITALISATION DAY 6
     Route: 042
  46. HALOPERIDOL [Suspect]
     Active Substance: HALOPERIDOL
     Dosage: 1 MILLIGRAM, Q4H
     Route: 042
  47. HALOPERIDOL [Suspect]
     Active Substance: HALOPERIDOL
     Dosage: 3 MILLIGRAM, RECEIVED 3 MG HALOPERIDOL WITHIN 12 HOURS
     Route: 042
  48. SIMETHICONE (DIMETHICONE) [Suspect]
     Active Substance: DIMETHICONE
     Indication: Nausea
     Dosage: 80 MILLIGRAM, QD, RECEIVED ON HOSPITALISATION DAY 3
     Route: 048
  49. SIMETHICONE (DIMETHICONE) [Suspect]
     Active Substance: DIMETHICONE
     Indication: Abdominal pain
  50. POTASSIUM [Suspect]
     Active Substance: POTASSIUM
     Indication: Electrolyte substitution therapy
     Dosage: RECEIVED CONTINUED ON HOSPITALISATION DAY 4 AND 5
     Route: 042
  51. SODIUM CHLORIDE [Suspect]
     Active Substance: SODIUM CHLORIDE
     Indication: Electrolyte substitution therapy
     Dosage: RECEIVED CONTINUED ON HOSPITALISATION DAY 4 AND 5
     Route: 042
  52. CAPSAICIN [Suspect]
     Active Substance: CAPSAICIN
     Indication: Product used for unknown indication
     Dosage: QD, RECEIVED ON HOSPITALISATION DAY 5
     Route: 065
  53. CAPSAICIN [Suspect]
     Active Substance: CAPSAICIN
     Dosage: QD, RECEIVED ON HOSPITALISATION DAY 6
     Route: 065
  54. ONDANSETRON [Suspect]
     Active Substance: ONDANSETRON
     Indication: Vomiting
     Dosage: 8 MILLIGRAM,0.5 D, RECEIVED ON HOSPITALISATION DAY 6
     Route: 048

REACTIONS (1)
  - Maternal exposure during pregnancy [Unknown]
